FAERS Safety Report 5175679-X (Version None)
Quarter: 2006Q4

REPORT INFORMATION
  Report Type: 
  Country: None (occurrence: None)
  Receive Date: 20061215
  Receipt Date: 20060718
  Transmission Date: 20070319
  Serious: No
  Sender: FDA-Public Use
  Company Number: US-AMGEN-KDL186711

PATIENT
  Sex: Female

DRUGS (2)
  1. ENBREL [Suspect]
     Indication: RHEUMATOID ARTHRITIS
     Route: 058
     Dates: start: 20021201
  2. METHOTREXATE [Concomitant]
     Route: 048
     Dates: start: 20060101

REACTIONS (6)
  - ASTHENIA [None]
  - COUGH [None]
  - FATIGUE [None]
  - JOINT DISLOCATION [None]
  - MYALGIA [None]
  - UPPER RESPIRATORY TRACT INFECTION [None]
